FAERS Safety Report 15006582 (Version 1)
Quarter: 2018Q2

REPORT INFORMATION
  Report Type: Report from Study
  Country: US (occurrence: US)
  Receive Date: 20180613
  Receipt Date: 20180613
  Transmission Date: 20180711
  Serious: No
  Sender: FDA-Public Use
  Company Number: US-US WORLDMEDS, LLC-USW201709-001318

PATIENT
  Age: 67 Year
  Sex: Male
  Weight: 65.77 kg

DRUGS (20)
  1. APOKYN [Suspect]
     Active Substance: APOMORPHINE HYDROCHLORIDE
     Route: 058
     Dates: start: 20170912
  2. CARBIDOPA/LEVO [Concomitant]
  3. COREG [Concomitant]
     Active Substance: CARVEDILOL
  4. COQ10 [Concomitant]
     Active Substance: UBIDECARENONE
  5. VITAMIN D [Concomitant]
     Active Substance: CHOLECALCIFEROL
  6. VITAMIN B12 [Concomitant]
     Active Substance: CYANOCOBALAMIN
  7. APOKYN [Suspect]
     Active Substance: APOMORPHINE HYDROCHLORIDE
  8. HUMALOG [Concomitant]
     Active Substance: INSULIN LISPRO
  9. FLOMAX [Concomitant]
     Active Substance: TAMSULOSIN HYDROCHLORIDE
  10. MIRALAX [Concomitant]
     Active Substance: POLYETHYLENE GLYCOL 3350
  11. METFORMIN [Concomitant]
     Active Substance: METFORMIN HYDROCHLORIDE
  12. NORVASC [Concomitant]
     Active Substance: AMLODIPINE BESYLATE
  13. VITAMIN E [Concomitant]
     Active Substance: .ALPHA.-TOCOPHEROL
  14. COLACE [Concomitant]
     Active Substance: DOCUSATE SODIUM
  15. LOSARTAN. [Concomitant]
     Active Substance: LOSARTAN
  16. LIPITOR [Concomitant]
     Active Substance: ATORVASTATIN CALCIUM
  17. CARBIDOPA/LEVO [Concomitant]
  18. ASA [Concomitant]
     Active Substance: ASPIRIN
  19. TIGAN [Concomitant]
     Active Substance: TRIMETHOBENZAMIDE HYDROCHLORIDE
  20. LANTUS [Concomitant]
     Active Substance: INSULIN GLARGINE

REACTIONS (1)
  - Bradyphrenia [Recovered/Resolved]

NARRATIVE: CASE EVENT DATE: 20170912
